FAERS Safety Report 9154440 (Version 1)
Quarter: 2013Q1

REPORT INFORMATION
  Report Type: Report from Study
  Country: US (occurrence: US)
  Receive Date: 20130311
  Receipt Date: 20130311
  Transmission Date: 20140127
  Serious: No
  Sender: FDA-Public Use
  Company Number: US-ABBOTT-12P-163-0928022-00

PATIENT
  Sex: Female

DRUGS (2)
  1. LUPRON DEPOT 11.25 MG [Suspect]
     Indication: UTERINE LEIOMYOMA
     Dates: start: 201101, end: 201101
  2. LUPRON DEPOT 11.25 MG [Suspect]
     Dates: start: 201110, end: 201201

REACTIONS (1)
  - Arthropathy [Unknown]
